FAERS Safety Report 13156859 (Version 1)
Quarter: 2017Q1

REPORT INFORMATION
  Report Type: Other
  Country: LB (occurrence: LB)
  Receive Date: 20170127
  Receipt Date: 20170127
  Transmission Date: 20170428
  Serious: No
  Sender: FDA-Public Use
  Company Number: LB-LUPIN PHARMACEUTICALS INC.-2016-05625

PATIENT
  Age: 50 Year
  Sex: Female

DRUGS (10)
  1. LITHIUM CARBONATE. [Interacting]
     Active Substance: LITHIUM CARBONATE
     Route: 065
  2. LITHIUM CARBONATE. [Interacting]
     Active Substance: LITHIUM CARBONATE
     Route: 065
  3. OLANZAPINE. [Suspect]
     Active Substance: OLANZAPINE
     Route: 065
  4. OLANZAPINE. [Suspect]
     Active Substance: OLANZAPINE
     Indication: PRODUCT USED FOR UNKNOWN INDICATION
     Route: 065
  5. DIAZEPAM. [Suspect]
     Active Substance: DIAZEPAM
     Indication: BIPOLAR DISORDER
     Route: 065
  6. LEVOTHYROXINE. [Concomitant]
     Active Substance: LEVOTHYROXINE
     Indication: HYPOTHYROIDISM
     Route: 065
  7. LITHIUM CARBONATE. [Interacting]
     Active Substance: LITHIUM CARBONATE
     Route: 065
  8. LITHIUM CARBONATE. [Interacting]
     Active Substance: LITHIUM CARBONATE
     Indication: BIPOLAR DISORDER
     Route: 065
  9. OLANZAPINE. [Suspect]
     Active Substance: OLANZAPINE
     Route: 065
  10. VALSARTAN. [Suspect]
     Active Substance: VALSARTAN
     Indication: HYPERTENSION
     Route: 065

REACTIONS (5)
  - Drug interaction [Unknown]
  - Dysgeusia [Unknown]
  - Toxicity to various agents [Recovered/Resolved]
  - Salivary hypersecretion [Recovered/Resolved]
  - Polyuria [Unknown]
